FAERS Safety Report 21073914 (Version 2)
Quarter: 2022Q3

REPORT INFORMATION
  Report Type: Report from Study
  Country: US (occurrence: US)
  Receive Date: 20220713
  Receipt Date: 20220801
  Transmission Date: 20221026
  Serious: Yes (Hospitalization)
  Sender: FDA-Public Use
  Company Number: US-BIOGEN-2022BI01138084

PATIENT
  Age: 4 Year
  Sex: Male

DRUGS (1)
  1. SPINRAZA [Suspect]
     Active Substance: NUSINERSEN
     Indication: Spinal muscular atrophy
     Route: 050
     Dates: start: 20180504

REACTIONS (3)
  - Cardiac arrest [Recovered/Resolved]
  - Bronchial secretion retention [Recovered/Resolved]
  - Device connection issue [Unknown]

NARRATIVE: CASE EVENT DATE: 20220329
